FAERS Safety Report 6909620-3 (Version None)
Quarter: 2010Q3

REPORT INFORMATION
  Report Type: 
  Country: None (occurrence: None)
  Receive Date: 20100805
  Receipt Date: 20100728
  Transmission Date: 20110219
  Serious: Yes (Death, Life-Threatening, Hospitalization)
  Sender: FDA-Public Use
  Company Number: US-GILEAD-2010-0030697

PATIENT
  Sex: Female
  Weight: 64 kg

DRUGS (4)
  1. LETAIRIS [Suspect]
     Indication: PULMONARY ARTERIAL HYPERTENSION
     Route: 048
     Dates: start: 20071207
  2. REVATIO [Concomitant]
  3. COZAAR [Concomitant]
  4. NEXIUM [Concomitant]

REACTIONS (1)
  - COMPLICATIONS OF TRANSPLANTED LUNG [None]
